FAERS Safety Report 6171746-2 (Version None)
Quarter: 2009Q2

REPORT INFORMATION
  Report Type: 
  Country: None (occurrence: None)
  Receive Date: 20090428
  Receipt Date: 20090428
  Transmission Date: 20091009
  Serious: Yes (Other)
  Sender: FDA-Public Use
  Company Number: None

PATIENT
  Age: 29 Year
  Sex: Female
  Weight: 77.1115 kg

DRUGS (1)
  1. LEVAQUIN [Suspect]
     Indication: WOUND ABSCESS
     Dosage: TWICE DAILY PO
     Route: 048
     Dates: start: 20080130, end: 20080204

REACTIONS (9)
  - ARTHRALGIA [None]
  - BURNING SENSATION [None]
  - FATIGUE [None]
  - JOINT SWELLING [None]
  - LIVER INJURY [None]
  - NAUSEA [None]
  - PRURITUS [None]
  - RASH [None]
  - URTICARIA [None]
